FAERS Safety Report 4547497-4 (Version None)
Quarter: 2005Q1

REPORT INFORMATION
  Report Type: 
  Country: None (occurrence: None)
  Receive Date: 20041227
  Receipt Date: 20040924
  Transmission Date: 20050727
  Serious: No
  Sender: FDA-Public Use
  Company Number: 04P-163-0274708-00

PATIENT
  Age: 55 Year
  Sex: Female
  Weight: 90.7194 kg

DRUGS (12)
  1. HUMIRA [Suspect]
     Indication: RHEUMATOID ARTHRITIS
     Dosage: 40 MG, 1 IN 2 WK, SUBCUTANEOUS
     Route: 058
     Dates: start: 20040801
  2. PREDNISONE [Concomitant]
  3. GLUCOPHAGE [Concomitant]
  4. ATORVASTATIN [Concomitant]
  5. FOLIC ACID [Concomitant]
  6. THYROXINE [Concomitant]
  7. ASPIRIN [Concomitant]
  8. GLIMEPIRIDE [Concomitant]
  9. LISONOPRIL [Concomitant]
  10. CALCIUM GLUCONATE [Concomitant]
  11. ACTOSE [Concomitant]
  12. VICODIN [Concomitant]

REACTIONS (1)
  - INJECTION SITE IRRITATION [None]
